FAERS Safety Report 6476735-6 (Version None)
Quarter: 2009Q4

REPORT INFORMATION
  Report Type: 
  Country: None (occurrence: None)
  Receive Date: 20091207
  Receipt Date: 20091126
  Transmission Date: 20100525
  Serious: Yes (Hospitalization)
  Sender: FDA-Public Use
  Company Number: PHHY2009CA51128

PATIENT
  Sex: Female

DRUGS (1)
  1. EXELON [Suspect]
     Indication: DEMENTIA ALZHEIMER'S TYPE
     Dosage: 10CM2, UNK
     Route: 062
     Dates: start: 20090530, end: 20090801

REACTIONS (3)
  - ABDOMINAL PAIN [None]
  - BLADDER CANCER [None]
  - PRURITUS [None]
